FAERS Safety Report 14539944 (Version 1)
Quarter: 2018Q1

REPORT INFORMATION
  Report Type: Spontaneous
  Country: DK (occurrence: DK)
  Receive Date: 20180215
  Receipt Date: 20180215
  Transmission Date: 20180509
  Serious: Yes (Death)
  Sender: FDA-Public Use
  Company Number: None

PATIENT
  Age: 73 Year
  Sex: Male
  Weight: 63 kg

DRUGS (2)
  1. GABAPENTIN. [Concomitant]
     Active Substance: GABAPENTIN
  2. AGOMELATINE [Suspect]
     Active Substance: AGOMELATINE
     Indication: HEADACHE
     Dates: start: 20161010, end: 20161016

REACTIONS (4)
  - Drug ineffective [None]
  - Night sweats [None]
  - Hepatotoxicity [None]
  - Hepatic failure [None]

NARRATIVE: CASE EVENT DATE: 20161010
